FAERS Safety Report 8798865 (Version 1)
Quarter: 2012Q4

REPORT INFORMATION
  Report Type: Spontaneous
  Country: US (occurrence: None)
  Receive Date: 20120918
  Receipt Date: 20120918
  Transmission Date: 20130627
  Serious: Yes (Life-Threatening, Other)
  Sender: FDA-Public Use
  Company Number: None

PATIENT
  Age: 59 Year
  Sex: Female
  Weight: 52.16 kg

DRUGS (1)
  1. VISTARIL [Suspect]
     Indication: ANXIETY DISORDER
     Dosage: take 4 a day for anxiety
     Dates: start: 20120915, end: 20120916

REACTIONS (9)
  - Sedation [None]
  - Feeling abnormal [None]
  - Vision blurred [None]
  - Dysphagia [None]
  - Panic reaction [None]
  - Nightmare [None]
  - Middle insomnia [None]
  - Screaming [None]
  - Nervous system disorder [None]
